FAERS Safety Report 24408234 (Version 1)
Quarter: 2024Q4

REPORT INFORMATION
  Report Type: Spontaneous
  Country: US (occurrence: US)
  Receive Date: 20241007
  Receipt Date: 20241007
  Transmission Date: 20250115
  Serious: Yes (Other)
  Sender: AMERICAN REGENT
  Company Number: US-AMERICAN REGENT INC-2024003727

PATIENT
  Age: 22 Year
  Sex: Female

DRUGS (2)
  1. TESTOSTERONE CYPIONATE [Suspect]
     Active Substance: TESTOSTERONE CYPIONATE
     Indication: Transgender hormonal therapy
     Dosage: WEEKLY HIGH-DOSE
     Route: 030
  2. NORETHINDRONE [Suspect]
     Active Substance: NORETHINDRONE
     Indication: Uterine haemorrhage
     Dosage: UNK
     Route: 048

REACTIONS (3)
  - Hepatic adenoma [Recovered/Resolved]
  - Product use issue [Recovered/Resolved]
  - Product use in unapproved indication [Recovered/Resolved]
